FAERS Safety Report 4666383-2 (Version None)
Quarter: 2005Q2

REPORT INFORMATION
  Report Type: 
  Country: None (occurrence: None)
  Receive Date: 20050517
  Receipt Date: 20050505
  Transmission Date: 20051028
  Serious: Yes (Other)
  Sender: FDA-Public Use
  Company Number: 2005070959

PATIENT
  Age: 54 Year
  Sex: Female
  Weight: 85.2762 kg

DRUGS (12)
  1. BEXTRA [Suspect]
     Indication: FIBROMYALGIA
     Dosage: 10 MG (10 MG, 1 IN 1 D), ORAL
     Route: 048
     Dates: start: 20040101
  2. BEXTRA [Suspect]
     Indication: OSTEOARTHRITIS
     Dosage: 10 MG (10 MG, 1 IN 1 D), ORAL
     Route: 048
     Dates: start: 20040101
  3. BEXTRA [Suspect]
     Indication: RHEUMATOID ARTHRITIS
     Dosage: 10 MG (10 MG, 1 IN 1 D), ORAL
     Route: 048
     Dates: start: 20040101
  4. GABAPENTIN [Concomitant]
  5. LEVOTHYROXINE SODIUM [Concomitant]
  6. CLONAZEPAM [Concomitant]
  7. TRAZODONE HCL [Concomitant]
  8. SINEMET [Concomitant]
  9. ASCORBIC ACID [Concomitant]
  10. ANTIBIOTICS (ANTIBIOTICS) [Concomitant]
  11. MULTIVITAMINS (ASCORBIC ACID, ERGOCALCIFEROL, FOLIC ACID, NICOTINAMIDE [Concomitant]
  12. EPINEPHRINE [Concomitant]

REACTIONS (5)
  - CONDITION AGGRAVATED [None]
  - EYELID PTOSIS [None]
  - RETINOPATHY [None]
  - ROTATOR CUFF REPAIR [None]
  - ROTATOR CUFF SYNDROME [None]
